FAERS Safety Report 8553152-6 (Version None)
Quarter: 2012Q3

REPORT INFORMATION
  Report Type: 
  Country: None (occurrence: None)
  Receive Date: 20120731
  Receipt Date: 20120718
  Transmission Date: 20120928
  Serious: Yes (Hospitalization)
  Sender: FDA-Public Use
  Company Number: JP-FRI-1000036864

PATIENT
  Sex: Male

DRUGS (10)
  1. ALLOPURINOL [Concomitant]
     Indication: HYPERURICAEMIA
     Dosage: 100 MG
     Route: 048
  2. ALFAROL [Concomitant]
     Indication: RENAL OSTEODYSTROPHY
  3. MEMANTINE HCL [Suspect]
     Dosage: 10 MG
     Route: 048
  4. LASIX [Concomitant]
     Indication: HYPERTENSION
     Dosage: 40 MG
     Route: 048
  5. MEMANTINE HCL [Suspect]
     Indication: DEMENTIA ALZHEIMER'S TYPE
     Dosage: 5 MG
     Route: 048
  6. MEMANTINE HCL [Suspect]
     Dosage: 20 MG
     Route: 048
     Dates: end: 20120627
  7. ALFAROL [Concomitant]
     Indication: RENAL FAILURE CHRONIC
     Dosage: 0.25 MCG
     Route: 048
  8. OXAROL [Concomitant]
     Indication: DIALYSIS
     Dosage: 2.5 MCG
     Route: 042
  9. MEMANTINE HCL [Suspect]
     Dosage: 15 MG
     Route: 048
  10. CANDESARTAN CILEXETIL [Concomitant]
     Indication: HYPERTENSION
     Dosage: 16 MG
     Route: 048

REACTIONS (3)
  - CONVULSION [None]
  - ALTERED STATE OF CONSCIOUSNESS [None]
  - HEMIPLEGIA [None]
